FAERS Safety Report 7927058-7 (Version None)
Quarter: 2011Q4

REPORT INFORMATION
  Report Type: 
  Country: None (occurrence: None)
  Receive Date: 20111118
  Receipt Date: 20111104
  Transmission Date: 20120403
  Serious: Yes (Hospitalization)
  Sender: FDA-Public Use
  Company Number: JP-ASTELLAS-2011US002945

PATIENT
  Sex: Male

DRUGS (9)
  1. AMBISOME [Suspect]
     Indication: BRONCHOPULMONARY ASPERGILLOSIS
     Dosage: 130 MG, UID/QD
     Route: 041
     Dates: start: 20110323, end: 20110419
  2. VITANEURIN [Concomitant]
     Indication: PRODUCT USED FOR UNKNOWN INDICATION
     Dosage: 75 MG, UNKNOWN/D
     Route: 048
  3. SELBEX [Concomitant]
     Indication: GASTRITIS
     Dosage: 150 MG, UID/QD
     Route: 048
  4. ZESULAN [Concomitant]
     Indication: PRURITUS
     Dosage: 6 MG, UID/QD
     Route: 048
     Dates: end: 20110506
  5. ATENOLOL [Concomitant]
     Indication: HYPERTENSION
     Dosage: 25 MG, UID/QD
     Route: 048
  6. RIZE [Concomitant]
     Indication: DEPRESSION
     Dosage: UNK
     Route: 048
  7. MAGMITT [Concomitant]
     Indication: CONSTIPATION
     Dosage: 660 MG, UID/QD
     Route: 048
  8. CEFAZOLIN SODIUM [Concomitant]
     Indication: CONSTIPATION
     Dosage: 3 G, UID/QD
     Route: 048
  9. DEXTROSE [Concomitant]
     Indication: MEDICATION DILUTION
     Dosage: 250 ML, UID/QD
     Route: 042
     Dates: start: 20110323, end: 20110419

REACTIONS (1)
  - INTERSTITIAL LUNG DISEASE [None]
